FAERS Safety Report 7679477-4 (Version None)
Quarter: 2011Q3

REPORT INFORMATION
  Report Type: 
  Country: None (occurrence: None)
  Receive Date: 20110812
  Receipt Date: 20110812
  Transmission Date: 20111222
  Serious: Yes (Hospitalization)
  Sender: FDA-Public Use
  Company Number: None

PATIENT
  Age: 30 Year
  Sex: Female
  Weight: 83.461 kg

DRUGS (9)
  1. PROPRANOLOL [Concomitant]
     Route: 048
  2. MONTELUKAST SODIUM [Concomitant]
     Route: 048
  3. ALPRAZOLAM [Concomitant]
     Route: 048
  4. ACETAMINOPHEN [Concomitant]
  5. PROPOFOL [Suspect]
     Indication: COLONOSCOPY
     Dosage: 400 MG IN INCREMENTS
     Route: 042
  6. PROPOFOL [Suspect]
     Indication: SEDATION
     Dosage: 400 MG IN INCREMENTS
     Route: 042
  7. PAROXETINE HCL [Concomitant]
     Route: 048
  8. LOPERAMIDE HCL [Concomitant]
     Route: 048
  9. ADVAIR DISKUS 250/50 [Concomitant]
     Route: 048

REACTIONS (3)
  - ASPARTATE AMINOTRANSFERASE INCREASED [None]
  - ABDOMINAL PAIN [None]
  - ALANINE AMINOTRANSFERASE INCREASED [None]
